FAERS Safety Report 10383803 (Version 1)
Quarter: 2014Q1

REPORT INFORMATION
  Report Type: Spontaneous
  Country: US (occurrence: None)
  Receive Date: 20140306
  Receipt Date: 20140306
  Transmission Date: 20141002
  Serious: Yes (Other)
  Sender: FDA-Public Use
  Company Number: 163-21880-13044437

PATIENT
  Age: 66 Year
  Sex: Female
  Weight: 94.35 kg

DRUGS (8)
  1. REVLIMID (LENALIDOMIDE) (25 MILLIGRAM, CAPSULES) [Suspect]
     Indication: PLASMA CELL MYELOMA
     Route: 048
     Dates: start: 201112
  2. COMPAZINE (PROCHLORPERAZINE EDISYLATE) [Concomitant]
  3. PRILOSEC (OMEPRAZOLE) [Concomitant]
  4. ALPRAZOLAM [Concomitant]
  5. ANTIHISTAMINES [Concomitant]
  6. KLOR-CON (POTASSIUM CHLORIDE) [Concomitant]
  7. MULTIVITAMINS [Concomitant]
  8. ZOLOFT (SERTRALINE HYDROCHLORIDE) [Concomitant]

REACTIONS (2)
  - White blood cell count decreased [None]
  - Platelet count decreased [None]
